FAERS Safety Report 5598264-4 (Version None)
Quarter: 2008Q1

REPORT INFORMATION
  Report Type: 
  Country: None (occurrence: None)
  Receive Date: 20080117
  Receipt Date: 20080117
  Transmission Date: 20080703
  Serious: Yes (Other)
  Sender: FDA-Public Use
  Company Number: None

PATIENT
  Sex: Male

DRUGS (1)
  1. ENBREL [Suspect]
     Indication: RHEUMATOID ARTHRITIS
     Dosage: INJECT 50MG TWICE WEEKLY SQ
     Route: 058

REACTIONS (2)
  - IMMUNOSUPPRESSION [None]
  - PNEUMONIA FUNGAL [None]
